FAERS Safety Report 15572244 (Version 8)
Quarter: 2020Q4

REPORT INFORMATION
  Report Type: Spontaneous
  Country: SK (occurrence: SK)
  Receive Date: 20181031
  Receipt Date: 20201016
  Transmission Date: 20210113
  Serious: Yes (Hospitalization, Other)
  Sender: FDA-Public Use
  Company Number: SK-MYLANLABS-2018M1081194

PATIENT
  Age: 66 Year
  Sex: Male

DRUGS (26)
  1. EMPAGLIFLOZIN [Concomitant]
     Active Substance: EMPAGLIFLOZIN
     Indication: PRODUCT USED FOR UNKNOWN INDICATION
     Dosage: 10 MG, UNK
  2. METFORMIN [Suspect]
     Active Substance: METFORMIN HYDROCHLORIDE
     Dosage: DOSE INCREASED 1000 MG, BID, (2X/DAY)
     Dates: start: 200504, end: 201106
  3. METFORMIN [Suspect]
     Active Substance: METFORMIN HYDROCHLORIDE
     Dosage: 850 MILLIGRAM, BID, (2X/DAY)
  4. ATORVASTATIN [Suspect]
     Active Substance: ATORVASTATIN
     Dosage: UNK
  5. SITAGLIPTIN [Suspect]
     Active Substance: SITAGLIPTIN
     Dosage: 100 MILLIGRAM, QD, DAILY
  6. SITAGLIPTIN [Suspect]
     Active Substance: SITAGLIPTIN
     Dosage: 100 MILLIGRAM, QD
     Dates: start: 201307, end: 201601
  7. GLIMEPIRIDE. [Suspect]
     Active Substance: GLIMEPIRIDE
     Indication: TYPE 2 DIABETES MELLITUS
     Dosage: 4 MG, QD
     Dates: start: 200504, end: 201601
  8. METFORMIN [Suspect]
     Active Substance: METFORMIN HYDROCHLORIDE
     Dosage: 2000 MG, QD
  9. BISOPROLOL [Suspect]
     Active Substance: BISOPROLOL
     Indication: PRODUCT USED FOR UNKNOWN INDICATION
     Dosage: 5 MG, QD
     Dates: start: 200508
  10. BISOPROLOL [Suspect]
     Active Substance: BISOPROLOL
     Dosage: 5 MG, QD
  11. BISOPROLOL [Suspect]
     Active Substance: BISOPROLOL
     Dosage: 5 MG, QD
     Dates: start: 201601
  12. SITAGLIPTIN [Suspect]
     Active Substance: SITAGLIPTIN
     Dosage: 10 MG, QD
     Dates: start: 201307, end: 201601
  13. INSULIN HUMAN W/ISOPHANE INSULIN [Suspect]
     Active Substance: INSULIN HUMAN
     Indication: TYPE 2 DIABETES MELLITUS
     Dosage: 10-0-10 IU UNITS AND TITRATED UP TO 16-0-14 IU UNITS, PREMIXED HUMAN INSULIN
     Route: 058
  14. ATORVASTATIN [Suspect]
     Active Substance: ATORVASTATIN
     Dosage: 80 MG, QD
     Dates: start: 201601
  15. AMLODIPINE [Suspect]
     Active Substance: AMLODIPINE BESYLATE
     Dosage: 10 MILLIGRAM, QD
     Dates: start: 201601
  16. RIVAROXABAN [Concomitant]
     Active Substance: RIVAROXABAN
     Indication: PRODUCT USED FOR UNKNOWN INDICATION
     Dosage: UNK
  17. INDAPAMIDE. [Suspect]
     Active Substance: INDAPAMIDE
     Indication: PRODUCT USED FOR UNKNOWN INDICATION
     Dosage: 2.5 MILLIGRAM, QD
     Dates: start: 201601
  18. PERINDOPRIL [Suspect]
     Active Substance: PERINDOPRIL
     Dosage: 10 MILLIGRAM, QD
     Dates: start: 201601
  19. SITAGLIPTIN [Suspect]
     Active Substance: SITAGLIPTIN
     Indication: TYPE 2 DIABETES MELLITUS
     Dosage: 10 MG, QD
     Dates: start: 201307, end: 201601
  20. ATORVASTATIN [Suspect]
     Active Substance: ATORVASTATIN
     Indication: PRODUCT USED FOR UNKNOWN INDICATION
     Dosage: 40 MILLIGRAM, QD
     Dates: start: 200508, end: 201106
  21. ATORVASTATIN [Suspect]
     Active Substance: ATORVASTATIN
     Dosage: 20 MG, QD (LATER INCREASED TO 40 MG DAILY), (1X/DAY)
  22. AMLODIPINE [Suspect]
     Active Substance: AMLODIPINE BESYLATE
     Indication: HYPERTENSION
     Dosage: 5 MG, QD
  23. METFORMIN [Suspect]
     Active Substance: METFORMIN HYDROCHLORIDE
     Indication: TYPE 2 DIABETES MELLITUS
     Dosage: 1700 MG, QD
     Dates: start: 200103
  24. PERINDOPRIL [Suspect]
     Active Substance: PERINDOPRIL
     Indication: HYPERTENSION
     Dosage: 4 MG, QD
  25. INSULIN HUMAN W/ISOPHANE INSULIN [Suspect]
     Active Substance: INSULIN HUMAN
     Dosage: UNK, (16-0-14 IU), 2X/DAY
     Route: 058
     Dates: start: 2014
  26. INSULIN HUMAN W/ISOPHANE INSULIN [Suspect]
     Active Substance: INSULIN HUMAN
     Dosage: 2 DOSAGE FORM, QD, (10-0-10 UNITS 2X/DAY)
     Route: 058

REACTIONS (9)
  - Myocardial infarction [Recovered/Resolved]
  - Weight increased [Recovering/Resolving]
  - Acute myocardial infarction [Recovered/Resolved]
  - Glycosylated haemoglobin increased [Recovering/Resolving]
  - Glycosylated haemoglobin decreased [Recovering/Resolving]
  - Diabetes mellitus [Recovered/Resolved]
  - Hypertension [Recovered/Resolved]
  - Hyperlipidaemia [Recovered/Resolved]
  - Drug ineffective [Recovered/Resolved]

NARRATIVE: CASE EVENT DATE: 200508
